FAERS Safety Report 8275047-8 (Version None)
Quarter: 2012Q2

REPORT INFORMATION
  Report Type: 
  Country: None (occurrence: None)
  Receive Date: 20120411
  Receipt Date: 20120330
  Transmission Date: 20120825
  Serious: Yes (Hospitalization)
  Sender: FDA-Public Use
  Company Number: NL-MEDIMMUNE-MEDI-0015375

PATIENT
  Sex: Male
  Weight: 9.9 kg

DRUGS (1)
  1. SYNAGIS [Suspect]
     Indication: PREMATURE BABY
     Route: 030
     Dates: start: 20111007, end: 20120323

REACTIONS (5)
  - PYREXIA [None]
  - ERYTHEMA [None]
  - RHINORRHOEA [None]
  - SKIN DISCOLOURATION [None]
  - CONVULSION [None]
